FAERS Safety Report 6260944-5 (Version None)
Quarter: 2009Q3

REPORT INFORMATION
  Report Type: 
  Country: None (occurrence: None)
  Receive Date: 20090709
  Receipt Date: 20090701
  Transmission Date: 20100115
  Serious: Yes (Death, Hospitalization, Other)
  Sender: FDA-Public Use
  Company Number: GB-BRISTOL-MYERS SQUIBB COMPANY-14687446

PATIENT
  Age: 48 Year
  Sex: Male

DRUGS (4)
  1. DIDANOSINE [Suspect]
     Indication: ANTIRETROVIRAL THERAPY
  2. ZIDOVUDINE [Suspect]
     Indication: ANTIRETROVIRAL THERAPY
  3. INDINIVIR SULFATE [Suspect]
     Indication: ANTIRETROVIRAL THERAPY
  4. NEVIRAPINE [Suspect]
     Indication: ANTIRETROVIRAL THERAPY

REACTIONS (4)
  - CHOLESTASIS [None]
  - HEPATIC FAILURE [None]
  - LACTIC ACIDOSIS [None]
  - RESPIRATORY FAILURE [None]
